FAERS Safety Report 8529631-4 (Version None)
Quarter: 2012Q3

REPORT INFORMATION
  Report Type: 
  Country: None (occurrence: None)
  Receive Date: 20120717
  Receipt Date: 20120717
  Transmission Date: 20120928
  Serious: Yes (Other)
  Sender: FDA-Public Use
  Company Number: None

PATIENT
  Age: 73 Year
  Sex: Male
  Weight: 102.5129 kg

DRUGS (1)
  1. CARBIDOPA/LEVODOPA/ENTACAPONE [Suspect]
     Indication: PARKINSON'S DISEASE
     Dosage: ONE TAB TID PO
     Route: 048
     Dates: start: 20120627

REACTIONS (4)
  - DRUG LEVEL BELOW THERAPEUTIC [None]
  - ACTIVITIES OF DAILY LIVING IMPAIRED [None]
  - BRADYKINESIA [None]
  - TREMOR [None]
